FAERS Safety Report 15547249 (Version 1)
Quarter: 2018Q4

REPORT INFORMATION
  Report Type: Spontaneous
  Country: JP (occurrence: JP)
  Receive Date: 20181024
  Receipt Date: 20181024
  Transmission Date: 20190205
  Serious: Yes (Death)
  Sender: FDA-Public Use
  Company Number: JP-JNJFOC-20180905340

PATIENT
  Age: 51 Year
  Sex: Male
  Weight: 66 kg

DRUGS (8)
  1. L CARTIN FF [Concomitant]
     Active Substance: LEVOCARNITINE
     Indication: HYPERAMMONAEMIA
     Route: 048
     Dates: start: 20150929
  2. XEPLION [Suspect]
     Active Substance: PALIPERIDONE PALMITATE
     Indication: SCHIZOPHRENIA
     Route: 030
     Dates: end: 20180710
  3. XEPLION [Suspect]
     Active Substance: PALIPERIDONE PALMITATE
     Indication: SCHIZOPHRENIA
     Route: 030
     Dates: end: 20171017
  4. XEPLION [Suspect]
     Active Substance: PALIPERIDONE PALMITATE
     Indication: SCHIZOPHRENIA
     Dosage: LEFT SHOULDER
     Route: 030
     Dates: start: 20160617, end: 20160617
  5. TASMOLIN [Concomitant]
     Active Substance: BIPERIDEN
     Indication: PARKINSONISM
     Route: 048
     Dates: start: 20150529
  6. DEPAKENE [Concomitant]
     Active Substance: VALPROIC ACID
     Indication: SCHIZOPHRENIA
     Route: 048
     Dates: start: 20150704
  7. XEPLION [Suspect]
     Active Substance: PALIPERIDONE PALMITATE
     Indication: SCHIZOPHRENIA
     Dosage: RIGHT SHOULDER
     Route: 030
     Dates: start: 20160506, end: 20160506
  8. FLUNITRAZEPAM [Concomitant]
     Active Substance: FLUNITRAZEPAM
     Indication: INSOMNIA
     Route: 048
     Dates: start: 20150331

REACTIONS (1)
  - Sudden death [Fatal]

NARRATIVE: CASE EVENT DATE: 20180803
